FAERS Safety Report 6326116-0 (Version None)
Quarter: 2009Q3

REPORT INFORMATION
  Report Type: 
  Country: None (occurrence: None)
  Receive Date: 20090824
  Receipt Date: 20090817
  Transmission Date: 20100115
  Serious: Yes (Other)
  Sender: FDA-Public Use
  Company Number: PHHY2009FR34430

PATIENT
  Age: 59 Year
  Sex: Female

DRUGS (2)
  1. FEMARA [Suspect]
     Indication: BREAST CANCER
     Dosage: 1 DF/DAY
  2. INSULIN [Concomitant]
     Indication: DIABETES MELLITUS

REACTIONS (3)
  - GAIT DISTURBANCE [None]
  - HYPOKINESIA [None]
  - MUSCULAR WEAKNESS [None]
